FAERS Safety Report 8927784 (Version 1)
Quarter: 2012Q4

REPORT INFORMATION
  Report Type: Report from Study
  Country: DE (occurrence: DE)
  Receive Date: 20121127
  Receipt Date: 20121127
  Transmission Date: 20130627
  Serious: Yes (Death, Hospitalization)
  Sender: FDA-Public Use
  Company Number: DE-ROCHE-1159666

PATIENT
  Age: 71 Year
  Sex: Female
  Weight: 84 kg

DRUGS (11)
  1. METHOXY POLYETHYLENE GLYCOL-EPOETIN BETA [Suspect]
     Indication: NEPHROGENIC ANAEMIA
     Dosage: Last dose prior to SAE was 14/Jan/2012
     Route: 058
  2. TORASEMID [Concomitant]
     Route: 065
  3. BISOPROLOL [Concomitant]
     Route: 065
  4. OMEPRAZOL [Concomitant]
     Route: 065
  5. COSOPT [Concomitant]
  6. ALLOPURINOL [Concomitant]
     Route: 065
  7. CITALOPRAM [Concomitant]
     Route: 065
  8. SIMVASTATIN [Concomitant]
     Route: 065
  9. LYRICA [Concomitant]
     Route: 065
  10. DECORTIN H [Concomitant]
     Route: 065
  11. ATACAND PLUS [Concomitant]
     Route: 065

REACTIONS (1)
  - Haematochezia [Fatal]
